FAERS Safety Report 10384347 (Version 1)
Quarter: 2014Q3

REPORT INFORMATION
  Report Type: Spontaneous
  Country: US (occurrence: US)
  Receive Date: 20140814
  Receipt Date: 20140814
  Transmission Date: 20150326
  Serious: Yes (Hospitalization)
  Sender: FDA-Public Use
  Company Number: US-SA-2014SA107229

PATIENT
  Age: 31 Year
  Sex: Male

DRUGS (64)
  1. ATENOLOL. [Concomitant]
     Active Substance: ATENOLOL
  2. FENTANYL. [Concomitant]
     Active Substance: FENTANYL
  3. HUMULIN NOS [Concomitant]
     Active Substance: INSULIN HUMAN
  4. BUMEX [Concomitant]
     Active Substance: BUMETANIDE
  5. LABETALOL [Concomitant]
     Active Substance: LABETALOL\LABETALOL HYDROCHLORIDE
  6. MYCELEX [Concomitant]
     Active Substance: CLOTRIMAZOLE
  7. CYTOVENE [Concomitant]
     Active Substance: GANCICLOVIR
  8. PROTONIX [Concomitant]
     Active Substance: PANTOPRAZOLE SODIUM
  9. NEOSTIGMINE [Concomitant]
     Active Substance: NEOSTIGMINE
  10. MORPHINE [Concomitant]
     Active Substance: MORPHINE
  11. NEUTRA-PHOS [Concomitant]
     Active Substance: POTASSIUM PHOSPHATE, MONOBASIC\SODIUM PHOSPHATE, DIBASIC, ANHYDROUS\SODIUM PHOSPHATE, MONOBASIC, MONOHYDRATE
  12. SOLU-MEDROL [Concomitant]
     Active Substance: METHYLPREDNISOLONE SODIUM SUCCINATE
  13. THYMOGLOBULIN [Suspect]
     Active Substance: LAPINE T-LYMPHOCYTE IMMUNE GLOBULIN
     Indication: IMMUNOSUPPRESSION
     Route: 065
  14. ROCEPHIN [Concomitant]
     Active Substance: CEFTRIAXONE SODIUM
  15. CLONIDINE. [Concomitant]
     Active Substance: CLONIDINE
  16. TRICOR [Concomitant]
     Active Substance: FENOFIBRATE
  17. NEURONTIN [Concomitant]
     Active Substance: GABAPENTIN
  18. PROCARDIA [Concomitant]
     Active Substance: NIFEDIPINE
  19. BACTRIM [Concomitant]
     Active Substance: SULFAMETHOXAZOLE\TRIMETHOPRIM
  20. VERSED [Concomitant]
     Active Substance: MIDAZOLAM HYDROCHLORIDE
  21. KAYEXALATE [Concomitant]
     Active Substance: SODIUM POLYSTYRENE SULFONATE
  22. HYDROCODONE [Concomitant]
     Active Substance: HYDROCODONE
  23. DEMEROL [Concomitant]
     Active Substance: MEPERIDINE HYDROCHLORIDE
  24. ACETAMINOPHEN. [Concomitant]
     Active Substance: ACETAMINOPHEN
  25. BENADRYL [Concomitant]
     Active Substance: DIPHENHYDRAMINE HYDROCHLORIDE
  26. LASIX [Concomitant]
     Active Substance: FUROSEMIDE
  27. LIDOCAINE. [Concomitant]
     Active Substance: LIDOCAINE
  28. UREA. [Concomitant]
     Active Substance: UREA
     Route: 061
  29. NEO-SYNEPHRINE [Concomitant]
     Active Substance: PHENYLEPHRINE HYDROCHLORIDE
  30. CALCIUM CHLORIDE ANHYDROUS [Concomitant]
     Active Substance: CALCIUM CHLORIDE ANHYDROUS
  31. SODIUM BICARBONATE. [Concomitant]
     Active Substance: SODIUM BICARBONATE
  32. MEGACE [Concomitant]
     Active Substance: MEGESTROL ACETATE
  33. DIURIL [Concomitant]
     Active Substance: CHLOROTHIAZIDE
  34. DAPSONE. [Concomitant]
     Active Substance: DAPSONE
  35. PEPCID [Concomitant]
     Active Substance: FAMOTIDINE
  36. DILAUDID [Concomitant]
     Active Substance: HYDROMORPHONE HYDROCHLORIDE
  37. VECURONIUM [Concomitant]
     Active Substance: VECURONIUM BROMIDE
  38. ROBINUL [Concomitant]
     Active Substance: GLYCOPYRROLATE
  39. MANNITOL. [Concomitant]
     Active Substance: MANNITOL
  40. ALBUMIN [Concomitant]
     Active Substance: ALBUMIN (HUMAN)
  41. SIMETHICONE [Concomitant]
     Active Substance: DIMETHICONE\SILICON DIOXIDE\SIMETHICONE
  42. ARANESP [Concomitant]
     Active Substance: DARBEPOETIN ALFA
  43. SOLU-CORTEF [Concomitant]
     Active Substance: HYDROCORTISONE SODIUM SUCCINATE
  44. PREDNISONE. [Concomitant]
     Active Substance: PREDNISONE
  45. MINOXIDIL. [Concomitant]
     Active Substance: MINOXIDIL
  46. ATIVAN [Concomitant]
     Active Substance: LORAZEPAM
  47. ZOFRAN [Concomitant]
     Active Substance: ONDANSETRON HYDROCHLORIDE
  48. MAGNESIUM OXIDE. [Concomitant]
     Active Substance: MAGNESIUM OXIDE
  49. SODIUM ACID PHOSPHATE [Concomitant]
  50. MYFORTIC [Concomitant]
     Active Substance: MYCOPHENOLATE SODIUM
  51. CARVEDILOL. [Concomitant]
     Active Substance: CARVEDILOL
  52. MULTIVITAMINS [Concomitant]
     Active Substance: VITAMINS
  53. OMEPRAZOLE. [Concomitant]
     Active Substance: OMEPRAZOLE
  54. TRAZODONE [Concomitant]
     Active Substance: TRAZODONE HYDROCHLORIDE
  55. TEMAZEPAM. [Concomitant]
     Active Substance: TEMAZEPAM
  56. PROGRAF [Concomitant]
     Active Substance: TACROLIMUS\TACROLIMUS ANHYDROUS
  57. NORVASC [Concomitant]
     Active Substance: AMLODIPINE BESYLATE
  58. MERREM [Concomitant]
     Active Substance: MEROPENEM
  59. PROPOFOL. [Concomitant]
     Active Substance: PROPOFOL
  60. XANAX [Concomitant]
     Active Substance: ALPRAZOLAM
  61. ULTRAM [Concomitant]
     Active Substance: TRAMADOL HYDROCHLORIDE
  62. VALCYTE [Concomitant]
     Active Substance: VALGANCICLOVIR HYDROCHLORIDE
  63. MAGNESIUM SULFATE [Concomitant]
     Active Substance: MAGNESIUM SULFATE
  64. OCTREOTIDE [Concomitant]
     Active Substance: OCTREOTIDE

REACTIONS (4)
  - Transplant dysfunction [Recovered/Resolved]
  - Anaemia [Recovered/Resolved]
  - Hyperkalaemia [Recovered/Resolved]
  - Pancreatitis [Recovered/Resolved with Sequelae]

NARRATIVE: CASE EVENT DATE: 20120806
